FAERS Safety Report 10174444 (Version 2)
Quarter: 2014Q2

REPORT INFORMATION
  Report Type: Report from Study
  Country: US (occurrence: US)
  Receive Date: 20140515
  Receipt Date: 20140515
  Transmission Date: 20141212
  Serious: Yes (Death)
  Sender: FDA-Public Use
  Company Number: US-TEVA-331890USA

PATIENT
  Sex: Male
  Weight: 70.37 kg

DRUGS (21)
  1. RESLIZUMAB [Suspect]
     Indication: ASTHMA
     Dosage: RESLIZUMAB VS PLACEBO
     Dates: start: 20120208
  2. FENTANYL [Suspect]
  3. DIPHENHYDRAMINE [Suspect]
  4. ONDANSETRON [Concomitant]
     Indication: HEADACHE
     Dosage: 4 MG/IV/SD
     Route: 042
     Dates: start: 20120310, end: 20120310
  5. SODIUM CHLORIDE [Concomitant]
     Indication: HEADACHE
     Dosage: 1000ML/IV/SD
     Route: 042
     Dates: start: 20120310, end: 20120310
  6. METOCLOPRAMIDE [Concomitant]
     Indication: HEADACHE
     Dosage: 10MG/IV/SD
     Route: 042
     Dates: start: 20120310, end: 20120310
  7. MAGNESIUM SULFATE [Concomitant]
     Indication: HEADACHE
     Dosage: 2000ML/IV/SD
     Route: 042
     Dates: start: 20120310, end: 20120310
  8. DIPHENHYDRAMINE HYDROCHLORIDE [Concomitant]
     Indication: RHINITIS ALLERGIC
     Dosage: 25MG/PO/PRN
     Route: 048
     Dates: start: 2009
  9. DIPHENHYDRAMINE HYDROCHLORIDE [Concomitant]
     Indication: HEADACHE
     Dosage: 25MG/IV/SD
     Route: 042
     Dates: start: 20120310, end: 20120310
  10. PREDNISONE [Concomitant]
     Indication: SINUSITIS
     Dosage: 40 MILLIGRAM DAILY;
     Route: 048
     Dates: start: 20120307, end: 20120311
  11. PREDNISONE [Concomitant]
     Dosage: 30 MILLIGRAM DAILY;
     Route: 048
     Dates: start: 20120312, end: 20120314
  12. PREDNISONE [Concomitant]
     Dosage: 20 MILLIGRAM DAILY;
     Route: 048
     Dates: start: 20120315, end: 20120316
  13. LEVOFLOXACIN [Concomitant]
     Indication: SINUSITIS
     Dosage: 750 MILLIGRAM DAILY;
     Route: 048
     Dates: start: 20120307, end: 20120327
  14. CICLESONIDE [Concomitant]
     Indication: ASTHMA
     Dosage: 640 MICROGRAM DAILY;
     Dates: start: 20100903
  15. MONTELUKAST [Concomitant]
     Indication: ASTHMA
     Dosage: 10 MILLIGRAM DAILY;
     Route: 048
     Dates: start: 20100903
  16. TIOTROPIUM BROMIDE [Concomitant]
     Indication: ASTHMA
     Dosage: 18 MICROGRAM DAILY;
     Dates: start: 20100507
  17. BUDESONIDE W/FORMOTEROL FUMARATE [Concomitant]
     Indication: ASTHMA
     Dosage: 640 MICROGRAM DAILY;
     Dates: start: 20100402
  18. FLUTICASONE PROPIONATE [Concomitant]
     Indication: SINUSITIS
     Dosage: 200 MICROGRAM DAILY; 100MCG/IN/BID
     Dates: start: 20100402
  19. LEVOSALBUTAMOL [Concomitant]
     Indication: ASTHMA
     Dosage: 1 VIAL/IH/PRN
     Dates: start: 2005
  20. SALBUTAMOL [Concomitant]
     Indication: ASTHMA
     Dosage: 180MCG/IH/PRN
     Dates: start: 1990
  21. CETIRIZINE HYDROCHLORIDE [Concomitant]
     Indication: RHINITIS ALLERGIC
     Dosage: 10 MILLIGRAM DAILY;
     Route: 048
     Dates: start: 2008

REACTIONS (1)
  - Toxicity to various agents [Fatal]
